FAERS Safety Report 6096613-4 (Version None)
Quarter: 2009Q1

REPORT INFORMATION
  Report Type: 
  Country: None (occurrence: None)
  Receive Date: 20090227
  Receipt Date: 20090216
  Transmission Date: 20090719
  Serious: Yes (Other)
  Sender: FDA-Public Use
  Company Number: DE-SOLVAY-00209000951

PATIENT
  Age: 941 Month
  Sex: Male
  Weight: 90 kg

DRUGS (1)
  1. COVERSUM 4MG TABLET [Suspect]
     Indication: HYPERTENSION
     Dosage: DAILY DOSE: 4 MILLIGRAM(S)
     Route: 048
     Dates: start: 19911101

REACTIONS (9)
  - ANTINUCLEAR ANTIBODY POSITIVE [None]
  - BACK PAIN [None]
  - BLOOD CREATININE INCREASED [None]
  - BLOOD UREA INCREASED [None]
  - COUGH [None]
  - HYPERBILIRUBINAEMIA [None]
  - OSTEOARTHRITIS [None]
  - RHINITIS [None]
  - TREMOR [None]
